FAERS Safety Report 9026097 (Version 1)
Quarter: 2013Q1

REPORT INFORMATION
  Report Type: Spontaneous
  Country: IT (occurrence: None)
  Receive Date: 20130107
  Receipt Date: 20130107
  Transmission Date: 20140127
  Serious: Yes (Other)
  Sender: FDA-Public Use
  Company Number: 1544442

PATIENT
  Age: 49 Year
  Sex: Female
  Weight: 74 kg

DRUGS (2)
  1. DOCETAXEL [Suspect]
     Indication: BREAST CANCER IN SITU
     Route: 041
     Dates: start: 20121211, end: 20121211
  2. ENDOXAN /00021101/ [Concomitant]

REACTIONS (4)
  - Feeling hot [None]
  - Scintillating scotoma [None]
  - Feeling hot [None]
  - Abdominal pain [None]
